FAERS Safety Report 16121575 (Version 1)
Quarter: 2019Q1

REPORT INFORMATION
  Report Type: Spontaneous
  Country: CZ (occurrence: CZ)
  Receive Date: 20190327
  Receipt Date: 20190327
  Transmission Date: 20190418
  Serious: Yes (Other)
  Sender: FDA-Public Use
  Company Number: CZ-ROCHE-2285608

PATIENT
  Sex: Male

DRUGS (4)
  1. ZODAC [Concomitant]
     Active Substance: CETIRIZINE HYDROCHLORIDE
     Route: 048
  2. SOLU-MEDROL [Concomitant]
     Active Substance: METHYLPREDNISOLONE SODIUM SUCCINATE
     Dosage: 125 MG IN 100 ML OF PHYSIOLOGICAL SALINE SOLUTION
     Route: 042
  3. OCREVUS [Suspect]
     Active Substance: OCRELIZUMAB
     Indication: RELAPSING-REMITTING MULTIPLE SCLEROSIS
     Route: 041
  4. PARALEN (CZECH REPUBLIC) [Concomitant]
     Route: 048

REACTIONS (2)
  - Rash [Unknown]
  - Infusion related reaction [Unknown]
